FAERS Safety Report 9677720 (Version 3)
Quarter: 2014Q1

REPORT INFORMATION
  Report Type: Spontaneous
  Country: US (occurrence: US)
  Receive Date: 20131108
  Receipt Date: 20140127
  Transmission Date: 20141002
  Serious: Yes (Other)
  Sender: FDA-Public Use
  Company Number: US-JNJFOC-20131018110

PATIENT
  Age: 31 Year
  Sex: Female
  Weight: 78.47 kg

DRUGS (7)
  1. STELARA [Suspect]
     Indication: PSORIASIS
     Route: 058
     Dates: start: 2012, end: 201306
  2. STELARA [Suspect]
     Indication: PSORIASIS
     Route: 058
     Dates: start: 20110727, end: 20130514
  3. ORTHO TRICYCLEN [Concomitant]
     Indication: CONTRACEPTION
     Route: 065
  4. HUMIRA [Concomitant]
     Route: 065
     Dates: start: 20080601, end: 20110622
  5. HUMIRA [Concomitant]
     Route: 065
     Dates: start: 20070510, end: 20080227
  6. ENBREL [Concomitant]
     Route: 065
     Dates: start: 20080310, end: 20100505
  7. CLOBETASOL PROPIONATE [Concomitant]
     Route: 065

REACTIONS (2)
  - Infectious mononucleosis [Not Recovered/Not Resolved]
  - Rocky mountain spotted fever [Recovering/Resolving]
